FAERS Safety Report 5013608-X (Version None)
Quarter: 2006Q2

REPORT INFORMATION
  Report Type: 
  Country: None (occurrence: None)
  Receive Date: 20060530
  Receipt Date: 20060523
  Transmission Date: 20061013
  Serious: Yes (Hospitalization)
  Sender: FDA-Public Use
  Company Number: SO6-USA-01820-01

PATIENT
  Age: 88 Year
  Sex: Male

DRUGS (14)
  1. PAXIL [Suspect]
     Indication: DRUG USE FOR UNKNOWN INDICATION
     Dosage: 10MG PER DAY
     Route: 048
     Dates: start: 20041201, end: 20060418
  2. NAMENDA [Suspect]
     Indication: AMNESIA
     Dosage: 5MG TWICE PER DAY
     Route: 048
     Dates: start: 20050501
  3. LISINOPRIL [Concomitant]
     Dosage: 40MG PER DAY
     Dates: end: 20060401
  4. LASIX [Concomitant]
     Dosage: 120MG PER DAY
  5. ATACAND [Concomitant]
     Dosage: 4MG PER DAY
  6. LOPRESSOR [Concomitant]
     Dosage: 25MG PER DAY
  7. CLONIDINE [Concomitant]
  8. GLIPIZIDE [Concomitant]
  9. PROSCAR [Concomitant]
     Dosage: 5MG PER DAY
  10. FLOMAX [Concomitant]
  11. PLENDIL [Concomitant]
     Dosage: 5MG PER DAY
  12. NITROGLYCERIN [Concomitant]
  13. POTASSIUM [Concomitant]
     Dosage: 30MEQ PER DAY
  14. ASPIRIN [Concomitant]
     Dosage: 81MG PER DAY

REACTIONS (6)
  - CONFUSIONAL STATE [None]
  - HEART RATE DECREASED [None]
  - HYPERSOMNIA [None]
  - MYOCARDIAL INFARCTION [None]
  - PULMONARY OEDEMA [None]
  - RENAL FAILURE CHRONIC [None]
